FAERS Safety Report 18359754 (Version 1)
Quarter: 2020Q4

REPORT INFORMATION
  Report Type: Spontaneous
  Country: US (occurrence: US)
  Receive Date: 20201008
  Receipt Date: 20201008
  Transmission Date: 20210114
  Serious: No
  Sender: FDA-Public Use
  Company Number: US-MYLANLABS-2020M1080757

PATIENT
  Sex: Female
  Weight: 113 kg

DRUGS (2)
  1. DICLOFENAC SODIUM TOPICAL GEL [Suspect]
     Active Substance: DICLOFENAC SODIUM
     Indication: ARTHRALGIA
     Dosage: THREE TIMES/ DAY
     Route: 061
  2. DICLOFENAC SODIUM TOPICAL GEL [Suspect]
     Active Substance: DICLOFENAC SODIUM
     Dosage: THREE TIMES/ DAY
     Route: 061

REACTIONS (3)
  - Product leakage [Unknown]
  - Off label use [Not Recovered/Not Resolved]
  - Product quality issue [Unknown]
